FAERS Safety Report 14776682 (Version 1)
Quarter: 2018Q2

REPORT INFORMATION
  Report Type: Spontaneous
  Country: FR (occurrence: FR)
  Receive Date: 20180419
  Receipt Date: 20180419
  Transmission Date: 20180711
  Serious: Yes (Other)
  Sender: FDA-Public Use
  Company Number: FR-MERCK KGAA-2045992

PATIENT
  Age: 45 Year
  Sex: Female

DRUGS (1)
  1. NOVOTHYROX [Suspect]
     Active Substance: LEVOTHYROXINE SODIUM
     Indication: PRODUCT USED FOR UNKNOWN INDICATION

REACTIONS (19)
  - Thyroid disorder [None]
  - Depression [None]
  - Blood thyroid stimulating hormone decreased [None]
  - Dizziness [None]
  - Malaise [None]
  - Muscle spasms [None]
  - Decreased activity [None]
  - Cold sweat [None]
  - Loss of personal independence in daily activities [None]
  - Weight decreased [None]
  - Fatigue [None]
  - Amnesia [None]
  - Body temperature fluctuation [None]
  - Thyroxine free increased [None]
  - Hypertension [None]
  - Disturbance in attention [None]
  - Mood altered [None]
  - C-reactive protein increased [None]
  - Headache [None]

NARRATIVE: CASE EVENT DATE: 20171024
